FAERS Safety Report 22396955 (Version 2)
Quarter: 2023Q2

REPORT INFORMATION
  Report Type: Spontaneous
  Country: US (occurrence: US)
  Receive Date: 20230602
  Receipt Date: 20230608
  Transmission Date: 20230721
  Serious: Yes (Life-Threatening, Hospitalization, Other)
  Sender: FDA-Public Use
  Company Number: None

PATIENT
  Age: 41 Year
  Sex: Male

DRUGS (2)
  1. GABAPENTIN [Suspect]
     Active Substance: GABAPENTIN
     Indication: Neuralgia
     Dosage: 300MG THREE TIMES A DAY
     Route: 065
  2. ACETAMINOPHEN [Concomitant]
     Active Substance: ACETAMINOPHEN
     Indication: Product used for unknown indication
     Dosage: OCCASIONALLY
     Route: 065

REACTIONS (4)
  - Drug-induced liver injury [Recovered/Resolved]
  - Electrocardiogram T wave peaked [Unknown]
  - Hyperkalaemia [Unknown]
  - Hyperglycaemia [Unknown]
